FAERS Safety Report 7628504-9 (Version None)
Quarter: 2011Q4

REPORT INFORMATION
  Report Type: 
  Country: None (occurrence: None)
  Receive Date: 20110711
  Receipt Date: 20110628
  Transmission Date: 20120403
  Serious: Yes (Other)
  Sender: FDA-Public Use
  Company Number: 2011028628

PATIENT
  Age: 50 Year
  Sex: Female
  Weight: 55.3388 kg

DRUGS (27)
  1. MUCINEX [Concomitant]
  2. TRAZODONE HCL [Concomitant]
  3. AFRIN [Concomitant]
  4. REMICADE [Concomitant]
  5. ADVAIR DISKUS 100/50 [Concomitant]
  6. CALCIUM (CALCIUM) [Concomitant]
  7. MULTIVITAMIN (ACCOMIN MULTIVITAMIN) [Concomitant]
  8. HIZENTRA [Suspect]
     Indication: HYPOGAMMAGLOBULINAEMIA
     Dosage: (7 G 1X/WEEK, INFUSED 35ML VIA 3-4 SITES OVER 1-1.5 HOURS SUBCUTANEOUS), (SUBCUTANEOUS)
     Route: 058
     Dates: start: 20110518
  9. HIZENTRA [Suspect]
     Indication: HYPOGAMMAGLOBULINAEMIA
     Dosage: (7 G 1X/WEEK, INFUSED 35ML VIA 3-4 SITES OVER 1-1.5 HOURS SUBCUTANEOUS), (SUBCUTANEOUS)
     Route: 058
     Dates: start: 20101210
  10. EX LAX (PHENOLPHTHALEIN) [Concomitant]
  11. ACTEMRA [Suspect]
  12. COMBIVENT [Concomitant]
  13. FOLIC ACID [Concomitant]
  14. METHOTREXATE [Concomitant]
  15. PHENERGAN [Concomitant]
  16. PREDNISONE [Concomitant]
  17. MORPHINE [Concomitant]
  18. BACLOFEN [Concomitant]
  19. SPIRIVA (TITROPIUM BROMIDE) [Concomitant]
  20. ACETAMINOPHEN [Concomitant]
  21. CYMBALTA [Concomitant]
  22. MOBIC [Concomitant]
  23. PROTONIX [Concomitant]
  24. PLAQUENIL [Concomitant]
  25. NASONEX [Concomitant]
  26. REGLAN [Concomitant]
  27. LIDODERM [Concomitant]

REACTIONS (7)
  - RHINITIS [None]
  - SINUSITIS [None]
  - EAR INFECTION [None]
  - UPPER RESPIRATORY TRACT INFECTION [None]
  - URINARY TRACT INFECTION [None]
  - PHARYNGITIS [None]
  - EYE INFECTION [None]
